FAERS Safety Report 13036150 (Version 1)
Quarter: 2016Q4

REPORT INFORMATION
  Report Type: Spontaneous
  Country: US (occurrence: US)
  Receive Date: 20161216
  Receipt Date: 20161216
  Transmission Date: 20170207
  Serious: No
  Sender: FDA-Public Use
  Company Number: US-PERRIGO-16US001796

PATIENT
  Age: 59 Year
  Sex: Female
  Weight: 63.49 kg

DRUGS (2)
  1. LYRICA [Concomitant]
     Active Substance: PREGABALIN
     Indication: FIBROMYALGIA
     Dosage: UNK
     Route: 048
  2. BACITRACIN. [Suspect]
     Active Substance: BACITRACIN
     Indication: EYE INFECTION
     Dosage: SMALL RIBBON, BID TO LEFT LOWER EYELID
     Route: 047
     Dates: start: 20160217

REACTIONS (3)
  - Burning sensation [Not Recovered/Not Resolved]
  - Hypersensitivity [Not Recovered/Not Resolved]
  - Eye swelling [Not Recovered/Not Resolved]

NARRATIVE: CASE EVENT DATE: 20160218
